FAERS Safety Report 6357805-X (Version None)
Quarter: 2009Q3

REPORT INFORMATION
  Report Type: 
  Country: None (occurrence: None)
  Receive Date: 20090916
  Receipt Date: 20090907
  Transmission Date: 20100115
  Serious: Yes (Other)
  Sender: FDA-Public Use
  Company Number: US-BAYER-200812809BCC

PATIENT
  Age: 60 Year
  Sex: Female
  Weight: 86 kg

DRUGS (3)
  1. ALEVE (CAPLET) [Suspect]
     Indication: BACK PAIN
     Dosage: UNIT DOSE: 200 MG
     Route: 048
     Dates: start: 20080515
  2. AMITRIPTYLINE HCL [Concomitant]
  3. TOTORLOL [Concomitant]

REACTIONS (9)
  - CARDIAC DISORDER [None]
  - CHEST DISCOMFORT [None]
  - CHEST PAIN [None]
  - DYSPNOEA [None]
  - MUSCULOSKELETAL PAIN [None]
  - NAUSEA [None]
  - SKIN BURNING SENSATION [None]
  - SKIN DISORDER [None]
  - URTICARIA [None]
